FAERS Safety Report 12632494 (Version 2)
Quarter: 2016Q3

REPORT INFORMATION
  Report Type: Spontaneous
  Country: US (occurrence: US)
  Receive Date: 20160808
  Receipt Date: 20160808
  Transmission Date: 20161109
  Serious: No
  Sender: FDA-Public Use
  Company Number: US-BEH-2016061820

PATIENT
  Age: 43 Year
  Sex: Female
  Weight: 56 kg

DRUGS (25)
  1. HIZENTRA [Suspect]
     Active Substance: HUMAN IMMUNOGLOBULIN G
     Indication: IMMUNODEFICIENCY COMMON VARIABLE
     Route: 058
  2. LIDOCAINE/PRILOCAINE [Concomitant]
     Active Substance: LIDOCAINE\PRILOCAINE
  3. GAVISCON [Concomitant]
     Active Substance: ALUMINUM HYDROXIDE\MAGNESIUM CARBONATE
  4. EPIPEN [Concomitant]
     Active Substance: EPINEPHRINE
  5. GLUCOSAMINE/CHONDR/MSM [Concomitant]
  6. METHOTREXATE. [Concomitant]
     Active Substance: METHOTREXATE
  7. SYMBICORT [Concomitant]
     Active Substance: BUDESONIDE\FORMOTEROL FUMARATE DIHYDRATE
  8. VITAMIN D [Concomitant]
     Active Substance: CHOLECALCIFEROL
  9. DAILY MULTIPLE VITAMIN [Concomitant]
  10. DIPHENHYDRAMINE. [Concomitant]
     Active Substance: DIPHENHYDRAMINE
  11. SINGULAIR [Concomitant]
     Active Substance: MONTELUKAST SODIUM
  12. CELEBREX [Concomitant]
     Active Substance: CELECOXIB
  13. COMBIVENT [Concomitant]
     Active Substance: ALBUTEROL SULFATE\IPRATROPIUM BROMIDE
  14. CALCIUM+VITAMIN D [Concomitant]
     Active Substance: CALCIUM\VITAMIN D
  15. MONONESSA [Concomitant]
     Active Substance: ETHINYL ESTRADIOL\NORGESTIMATE
  16. MIRENA [Concomitant]
     Active Substance: LEVONORGESTREL
  17. LIPITOR [Concomitant]
     Active Substance: ATORVASTATIN CALCIUM
  18. ZANTAC [Concomitant]
     Active Substance: RANITIDINE HYDROCHLORIDE
  19. SPRINTEC [Concomitant]
     Active Substance: ETHINYL ESTRADIOL\NORGESTIMATE
  20. FISH OIL [Concomitant]
     Active Substance: FISH OIL
  21. LEVOCARNITINE. [Concomitant]
     Active Substance: LEVOCARNITINE
  22. IRON [Concomitant]
     Active Substance: IRON
  23. VERAMYST [Concomitant]
     Active Substance: FLUTICASONE FUROATE
  24. NEXIUM [Concomitant]
     Active Substance: ESOMEPRAZOLE MAGNESIUM
  25. ZYRTEC [Concomitant]
     Active Substance: CETIRIZINE HYDROCHLORIDE

REACTIONS (1)
  - Sinusitis [Unknown]

NARRATIVE: CASE EVENT DATE: 20151222
